FAERS Safety Report 7433163-4 (Version None)
Quarter: 2011Q2

REPORT INFORMATION
  Report Type: 
  Country: None (occurrence: None)
  Receive Date: 20110422
  Receipt Date: 20110414
  Transmission Date: 20111010
  Serious: Yes (Hospitalization, Other)
  Sender: FDA-Public Use
  Company Number: US-ASTRAZENECA-2011SE21526

PATIENT
  Age: 56 Year
  Sex: Male

DRUGS (3)
  1. ADVAIR HFA [Concomitant]
  2. SYMBICORT [Suspect]
     Route: 055
  3. NEXIUM [Suspect]
     Route: 048

REACTIONS (5)
  - BARRETT'S OESOPHAGUS [None]
  - DRUG DOSE OMISSION [None]
  - COLECTOMY [None]
  - NEOPLASM MALIGNANT [None]
  - DYSPNOEA [None]
